FAERS Safety Report 9149198 (Version 1)
Quarter: 2013Q1

REPORT INFORMATION
  Report Type: Spontaneous
  Country: AU (occurrence: None)
  Receive Date: 20130130
  Receipt Date: 20130130
  Transmission Date: 20140127
  Serious: Yes (Other)
  Sender: FDA-Public Use
  Company Number: 1577204

PATIENT
  Age: 41 Year
  Sex: Female

DRUGS (3)
  1. CARBOPLATIN [Suspect]
     Indication: OVARIAN EPITHELIAL CANCER
     Dosage: NOT REPORTED, UNKNOWN,  UNKNOWN?UNKNOWN
  2. PACLITAXEL [Suspect]
     Indication: OVARIAN EPITHELIAL CANCER
     Dosage: NOT REPORTED, UNKNOWN,  UNKNOWN?UNKNOWN
  3. UNSPECIFIED INGREDIENT [Suspect]
     Indication: OVARIAN EPITHELIAL CANCER
     Dosage: NOT REPORTED, UNKNOWN,  UNKNOWN?UNKNOWN

REACTIONS (3)
  - Fatigue [None]
  - Oropharyngeal pain [None]
  - Acute myeloid leukaemia [None]
